FAERS Safety Report 5551563-4 (Version None)
Quarter: 2007Q4

REPORT INFORMATION
  Report Type: 
  Country: None (occurrence: None)
  Receive Date: 20071128
  Receipt Date: 20070626
  Transmission Date: 20080405
  Serious: Yes (Other)
  Sender: FDA-Public Use
  Company Number: 2007052818

PATIENT
  Sex: Male

DRUGS (2)
  1. LIPITOR [Suspect]
     Dosage: (20 MG) - SEVERAL YEARS AGO
  2. DIOVAN [Concomitant]

REACTIONS (4)
  - DIZZINESS [None]
  - FALL [None]
  - INTENTIONAL DRUG MISUSE [None]
  - SYNCOPE [None]
